FAERS Safety Report 4782449-0 (Version None)
Quarter: 2005Q3

REPORT INFORMATION
  Report Type: 
  Country: None (occurrence: None)
  Receive Date: 20050929
  Receipt Date: 20041105
  Transmission Date: 20060218
  Serious: No
  Sender: FDA-Public Use
  Company Number: 383536

PATIENT
  Sex: Male

DRUGS (1)
  1. COREG [Suspect]
     Indication: DRUG USE FOR UNKNOWN INDICATION
     Dosage: 25MG TWICE PER DAY
     Route: 048

REACTIONS (2)
  - INSOMNIA [None]
  - NIGHTMARE [None]
